FAERS Safety Report 7472085-X (Version None)
Quarter: 2011Q2

REPORT INFORMATION
  Report Type: 
  Country: None (occurrence: None)
  Receive Date: 20110511
  Receipt Date: 20101210
  Transmission Date: 20111010
  Serious: No
  Sender: FDA-Public Use
  Company Number: A0899310A

PATIENT
  Age: 59 Year
  Sex: Female

DRUGS (6)
  1. METOPROLOL SUCCINATE [Concomitant]
  2. PROZAC [Concomitant]
  3. IMODIUM [Concomitant]
  4. TYKERB [Suspect]
     Indication: BREAST CANCER
     Dosage: 1250MG PER DAY
     Route: 048
     Dates: start: 20101204
  5. XELODA [Concomitant]
  6. ALPRAZOLAM [Concomitant]

REACTIONS (2)
  - DIARRHOEA [None]
  - NAUSEA [None]
